FAERS Safety Report 7294848-6 (Version None)
Quarter: 2011Q1

REPORT INFORMATION
  Report Type: 
  Country: None (occurrence: None)
  Receive Date: 20110207
  Receipt Date: 20110124
  Transmission Date: 20110831
  Serious: Yes (Hospitalization)
  Sender: FDA-Public Use
  Company Number: 026100

PATIENT
  Age: 88 Year
  Sex: Female

DRUGS (5)
  1. ISOSORBIDE MONONITRATE [Suspect]
     Indication: INFARCTION
     Dates: start: 20100101, end: 20100712
  2. ATENOLOL [Concomitant]
  3. PLAVIX [Concomitant]
  4. EZETROL [Concomitant]
  5. MOTILIUM /00498201/ [Concomitant]

REACTIONS (1)
  - ATRIOVENTRICULAR BLOCK COMPLETE [None]
